FAERS Safety Report 5808110-9 (Version None)
Quarter: 2008Q3

REPORT INFORMATION
  Report Type: 
  Country: None (occurrence: None)
  Receive Date: 20080711
  Receipt Date: 20080704
  Transmission Date: 20090109
  Serious: Yes (Hospitalization)
  Sender: FDA-Public Use
  Company Number: FR-PFIZER INC-2008055881

PATIENT
  Sex: Female

DRUGS (8)
  1. TAHOR [Suspect]
     Route: 048
  2. PREVISCAN [Interacting]
     Dosage: TEXT:0.5 DOSE FROM DAILY EVERY DAY
     Route: 048
  3. AUGMENTIN '125' [Interacting]
     Dates: start: 20080612, end: 20080613
  4. CALCIPARINE [Interacting]
     Route: 058
     Dates: start: 20080612, end: 20080613
  5. CORDARONE [Interacting]
     Route: 048
  6. PRAXILENE [Concomitant]
     Route: 048
  7. LORAZEPAM [Concomitant]
  8. ACETAMINOPHEN [Concomitant]

REACTIONS (3)
  - DRUG INTERACTION [None]
  - INTERNATIONAL NORMALISED RATIO INCREASED [None]
  - OVERDOSE [None]
